FAERS Safety Report 10863187 (Version 1)
Quarter: 2015Q1

REPORT INFORMATION
  Report Type: Spontaneous
  Country: US (occurrence: US)
  Receive Date: 20150223
  Receipt Date: 20150223
  Transmission Date: 20150721
  Serious: Yes (Other)
  Sender: FDA-Public Use
  Company Number: US-MYLANLABS-2015M1005459

PATIENT

DRUGS (2)
  1. TACROLIMUS. [Suspect]
     Active Substance: TACROLIMUS
     Dosage: 2.5 MG TWICE DAILY FOR 3 DAYS; THEN 4.5 MG TWICE DAILY FOR 2 DAYS.
     Route: 048
  2. TACROLIMUS. [Suspect]
     Active Substance: TACROLIMUS
     Dosage: 2.5 MG TWICE DAILY FOR 3 DAYS; THEN 4.5 MG TWICE DAILY FOR 2 DAYS.
     Route: 048

REACTIONS (3)
  - Subarachnoid haemorrhage [Unknown]
  - Superficial siderosis of central nervous system [Unknown]
  - Posterior reversible encephalopathy syndrome [Recovering/Resolving]
